FAERS Safety Report 4687192-4 (Version None)
Quarter: 2005Q2

REPORT INFORMATION
  Report Type: 
  Country: None (occurrence: None)
  Receive Date: 20050607
  Receipt Date: 20050525
  Transmission Date: 20051028
  Serious: Yes (Hospitalization, Other)
  Sender: FDA-Public Use
  Company Number: 2005079670

PATIENT
  Sex: Female
  Weight: 68.0396 kg

DRUGS (3)
  1. BEXTRA [Suspect]
     Indication: PAIN
     Dosage: ORAL
     Route: 048
     Dates: end: 20040101
  2. CENESTIN (ESTROGENS) [Concomitant]
  3. TOPROL-XL [Concomitant]

REACTIONS (3)
  - CONFUSIONAL STATE [None]
  - DROOLING [None]
  - PHOTOPSIA [None]
